FAERS Safety Report 8805547 (Version 2)
Quarter: 2013Q1

REPORT INFORMATION
  Report Type: Spontaneous
  Country: US (occurrence: US)
  Receive Date: 20120924
  Receipt Date: 20130225
  Transmission Date: 20140127
  Serious: Yes (Death)
  Sender: FDA-Public Use
  Company Number: US-ROCHE-CID000000002102837

PATIENT
  Sex: Male

DRUGS (6)
  1. AVASTIN [Suspect]
     Indication: PROSTATE CANCER
     Route: 065
  2. AVASTIN [Suspect]
     Indication: BONE CANCER
  3. AVASTIN [Suspect]
     Indication: BONE CANCER
  4. TAXOTERE [Concomitant]
     Indication: PROSTATE CANCER
  5. CARBOPLATIN [Concomitant]
     Indication: PROSTATE CANCER
  6. EMCYT [Concomitant]
     Indication: PROSTATE CANCER

REACTIONS (1)
  - Death [Fatal]
